FAERS Safety Report 10780989 (Version 1)
Quarter: 2015Q1

REPORT INFORMATION
  Report Type: Spontaneous
  Country: US (occurrence: None)
  Receive Date: 20150209
  Receipt Date: 20150209
  Transmission Date: 20150721
  Serious: Yes (Other)
  Sender: FDA-Public Use
  Company Number: None

PATIENT
  Age: 58 Year
  Sex: Male
  Weight: 83.01 kg

DRUGS (21)
  1. PRILOSEC [Concomitant]
     Active Substance: OMEPRAZOLE MAGNESIUM
  2. HYDROCORTISONE. [Concomitant]
     Active Substance: HYDROCORTISONE
  3. SENOKOT [Concomitant]
     Active Substance: SENNOSIDES
  4. POTASSIUM CHLORIDE. [Concomitant]
     Active Substance: POTASSIUM CHLORIDE
  5. ZAROXOLYN [Concomitant]
     Active Substance: METOLAZONE
  6. INSPIRAL [Concomitant]
     Active Substance: METHYLPHENIDATE HYDROCHLORIDE
  7. SYNTHROID [Concomitant]
     Active Substance: LEVOTHYROXINE SODIUM
  8. FENTANYL TRANSDERM PATCH [Concomitant]
  9. LIPITOR [Concomitant]
     Active Substance: ATORVASTATIN CALCIUM
  10. LINZESS [Suspect]
     Active Substance: LINACLOTIDE
     Indication: ABDOMINAL PAIN
     Dosage: 1 QD ORAL
     Route: 048
     Dates: start: 20150119, end: 20150123
  11. ALLOPURINOL. [Concomitant]
     Active Substance: ALLOPURINOL
  12. BETAPAC [Concomitant]
  13. LASIX [Concomitant]
     Active Substance: FUROSEMIDE
  14. ANDROGEL TRANSDERM [Concomitant]
  15. ASPIRIN. [Concomitant]
     Active Substance: ASPIRIN
  16. PROZAC [Concomitant]
     Active Substance: FLUOXETINE HYDROCHLORIDE
  17. VITAMIN D3 [Concomitant]
     Active Substance: CHOLECALCIFEROL
  18. LINZESS [Suspect]
     Active Substance: LINACLOTIDE
     Indication: CONSTIPATION
     Dosage: 1 QD ORAL
     Route: 048
     Dates: start: 20150119, end: 20150123
  19. COLACE [Concomitant]
     Active Substance: DOCUSATE SODIUM
  20. DILAUDID [Concomitant]
     Active Substance: HYDROMORPHONE HYDROCHLORIDE
  21. PROLIA [Concomitant]
     Active Substance: DENOSUMAB

REACTIONS (3)
  - Energy increased [None]
  - Mania [None]
  - Insomnia [None]

NARRATIVE: CASE EVENT DATE: 20150205
